FAERS Safety Report 7170250-2 (Version None)
Quarter: 2010Q4

REPORT INFORMATION
  Report Type: 
  Country: None (occurrence: None)
  Receive Date: 20101217
  Receipt Date: 20101209
  Transmission Date: 20110411
  Serious: No
  Sender: FDA-Public Use
  Company Number: US-PFIZER INC-2010169058

PATIENT
  Sex: Female
  Weight: 72.574 kg

DRUGS (15)
  1. EFFEXOR [Suspect]
     Indication: DEPRESSION
     Dosage: UNK
     Dates: start: 20090101
  2. XANAX [Suspect]
     Indication: INSOMNIA
     Dosage: 1/4 TABLET EVERY 4 HOURS DURING THE DAY AND AND 2 TABLETS AT NIGHT
  3. XANAX [Suspect]
     Indication: AGITATION
  4. PRAVASTATIN [Concomitant]
     Indication: BLOOD CHOLESTEROL INCREASED
  5. METOPROLOL TARTRATE [Concomitant]
     Indication: HEART RATE INCREASED
  6. METOPROLOL TARTRATE [Concomitant]
     Indication: BLOOD PRESSURE INCREASED
  7. RANITIDINE [Concomitant]
     Indication: GASTROOESOPHAGEAL REFLUX DISEASE
     Dosage: 2 DAILY
  8. BENAZEPRIL [Concomitant]
     Indication: BLOOD PRESSURE INCREASED
  9. CILOSTAZOL [Concomitant]
  10. HYDROCHLOROTHIAZIDE [Concomitant]
  11. CLONIDINE [Concomitant]
     Indication: BLOOD PRESSURE INCREASED
  12. DOXAZOSIN MESILATE [Concomitant]
  13. DILTIAZEM [Concomitant]
  14. VENTOLIN [Concomitant]
  15. ACETYLSALICYLIC ACID [Concomitant]

REACTIONS (2)
  - MEMORY IMPAIRMENT [None]
  - PAIN IN EXTREMITY [None]
